FAERS Safety Report 9929085 (Version 1)
Quarter: 2014Q1

REPORT INFORMATION
  Report Type: Spontaneous
  Country: IN (occurrence: None)
  Receive Date: 20140225
  Receipt Date: 20140225
  Transmission Date: 20141002
  Serious: Yes (Hospitalization, Other)
  Sender: FDA-Public Use
  Company Number: IN-ALKEM-000499

PATIENT
  Age: 28 Year
  Sex: Female

DRUGS (1)
  1. AMLODIPINE (AMLODIPINE) [Suspect]

REACTIONS (10)
  - Overdose [None]
  - Abdominal pain [None]
  - Vomiting [None]
  - Pleural effusion [None]
  - Pulmonary oedema [None]
  - Renal failure acute [None]
  - Respiratory failure [None]
  - Hypotension [None]
  - Shock [None]
  - Dizziness [None]
